FAERS Safety Report 5850242-3 (Version None)
Quarter: 2008Q3

REPORT INFORMATION
  Report Type: 
  Country: None (occurrence: None)
  Receive Date: 20080819
  Receipt Date: 20080811
  Transmission Date: 20090109
  Serious: Yes (Other)
  Sender: FDA-Public Use
  Company Number: PHHY2008AU07040

PATIENT
  Sex: Male
  Weight: 65.1 kg

DRUGS (10)
  1. EXJADE [Suspect]
     Indication: CHELATION THERAPY
     Dosage: 2 G/DAY
     Route: 048
     Dates: start: 20070112, end: 20080117
  2. EXJADE [Suspect]
     Indication: IRON OVERLOAD
  3. DESFERRIOXAMINE MESYLATE [Concomitant]
     Indication: CHELATION THERAPY
     Dosage: 500 MG, BID
     Route: 058
  4. KEFLEX [Concomitant]
  5. LIPITOR [Concomitant]
  6. MAXOLON [Concomitant]
  7. METOPROLOL TARTRATE [Concomitant]
  8. OROXINE [Concomitant]
  9. PANAMAX [Concomitant]
  10. SOMAC [Concomitant]

REACTIONS (5)
  - ALANINE AMINOTRANSFERASE INCREASED [None]
  - BLOOD CREATININE INCREASED [None]
  - DIARRHOEA [None]
  - NAUSEA [None]
  - SERUM FERRITIN INCREASED [None]
